FAERS Safety Report 17469614 (Version 1)
Quarter: 2020Q1

REPORT INFORMATION
  Report Type: Spontaneous
  Country: CA (occurrence: CA)
  Receive Date: 20200227
  Receipt Date: 20200227
  Transmission Date: 20200409
  Serious: Yes (Death)
  Sender: FDA-Public Use
  Company Number: CA-TEVA-2020-CA-1190127

PATIENT
  Age: 64 Year
  Sex: Male

DRUGS (4)
  1. CITALOPRAM [Concomitant]
     Active Substance: CITALOPRAM HYDROBROMIDE
  2. NAPROXEN. [Concomitant]
     Active Substance: NAPROXEN
  3. HYDROMORPHONE [Suspect]
     Active Substance: HYDROMORPHONE
     Route: 065
  4. METHAMPHETAMINE [Concomitant]
     Active Substance: METHAMPHETAMINE

REACTIONS (7)
  - Cardio-respiratory arrest [Fatal]
  - Pulmonary congestion [Fatal]
  - Vomiting [Fatal]
  - Foaming at mouth [Fatal]
  - Snoring [Fatal]
  - Aspiration [Fatal]
  - Pulmonary oedema [Fatal]
